FAERS Safety Report 13421724 (Version 1)
Quarter: 2017Q2

REPORT INFORMATION
  Report Type: Spontaneous
  Country: BG (occurrence: BG)
  Receive Date: 20170410
  Receipt Date: 20170410
  Transmission Date: 20170830
  Serious: Yes (Hospitalization)
  Sender: FDA-Public Use
  Company Number: BG-ASTRAZENECA-2017SE36004

PATIENT
  Age: 78 Year
  Sex: Female

DRUGS (8)
  1. PERINDOPRIL ARGININE/AMLODIPINE [Concomitant]
     Dosage: 5MG/5MG UNKNOWN
  2. CRESTOR [Concomitant]
     Active Substance: ROSUVASTATIN CALCIUM
     Dosage: 20.0MG UNKNOWN
  3. BRILIQUE [Suspect]
     Active Substance: TICAGRELOR
     Route: 048
  4. BETALOC ZOK [Concomitant]
     Active Substance: METOPROLOL SUCCINATE
  5. ACETYLSALICYLIC ACID [Concomitant]
     Active Substance: ASPIRIN
  6. TRIMETAZIDINE DIHYDROCHLORIDE [Concomitant]
     Active Substance: TRIMETAZIDINE DIHYDROCHLORIDE
     Dosage: 2.0DF UNKNOWN
  7. VALSARTAN. [Concomitant]
     Active Substance: VALSARTAN
  8. PLENDIL [Concomitant]
     Active Substance: FELODIPINE

REACTIONS (5)
  - Periodontitis [Unknown]
  - Gingival bleeding [Unknown]
  - Angina pectoris [Unknown]
  - Haematoma [Unknown]
  - Angina unstable [Unknown]
